FAERS Safety Report 5879099-1 (Version None)
Quarter: 2008Q3

REPORT INFORMATION
  Report Type: 
  Country: None (occurrence: None)
  Receive Date: 20080912
  Receipt Date: 20080705
  Transmission Date: 20090109
  Serious: No
  Sender: FDA-Public Use
  Company Number: US-BAYER-200828345NA

PATIENT
  Sex: Female

DRUGS (1)
  1. YAZ [Suspect]
     Indication: DRUG USE FOR UNKNOWN INDICATION
     Route: 048
     Dates: start: 20080601

REACTIONS (4)
  - ABDOMINAL DISTENSION [None]
  - DECREASED APPETITE [None]
  - NAUSEA [None]
  - WEIGHT INCREASED [None]
